FAERS Safety Report 18816461 (Version 2)
Quarter: 2021Q1

REPORT INFORMATION
  Report Type: Spontaneous
  Country: MX (occurrence: MX)
  Receive Date: 20210201
  Receipt Date: 20210322
  Transmission Date: 20210419
  Serious: No
  Sender: FDA-Public Use
  Company Number: MX-PFIZER INC-2021063321

PATIENT
  Age: 27 Year
  Sex: Female

DRUGS (1)
  1. SAYANA [Suspect]
     Active Substance: MEDROXYPROGESTERONE
     Indication: CONTRACEPTION
     Dosage: 1 DF, EVERY 3 MONTHS

REACTIONS (2)
  - Drug dose omission by device [Unknown]
  - Device issue [Unknown]
